FAERS Safety Report 9207377 (Version 2)
Quarter: 2014Q1

REPORT INFORMATION
  Report Type: Spontaneous
  Country: US (occurrence: US)
  Receive Date: 20130403
  Receipt Date: 20140203
  Transmission Date: 20141002
  Serious: Yes (Other)
  Sender: FDA-Public Use
  Company Number: US-BAYER-2013-039738

PATIENT
  Age: 36 Year
  Sex: Female

DRUGS (6)
  1. YAZ [Suspect]
     Dosage: UNK
     Dates: start: 2008
  2. YASMIN [Suspect]
     Dosage: UNK
     Dates: start: 2008
  3. AMITRIPTYLINE [Concomitant]
     Dosage: UNK
     Dates: start: 20100119
  4. CELEBREX [Concomitant]
     Dosage: UNK
     Dates: start: 20100119
  5. SINGULAIR [Concomitant]
     Dosage: UNK
     Dates: start: 20100127
  6. XYZAL [Concomitant]
     Dosage: UNK
     Dates: start: 20100301

REACTIONS (7)
  - Gallbladder disorder [None]
  - Cholecystitis chronic [None]
  - Injury [None]
  - Pain [None]
  - Emotional distress [None]
  - Anxiety [None]
  - Psychological trauma [None]
